FAERS Safety Report 17486039 (Version 4)
Quarter: 2021Q3

REPORT INFORMATION
  Report Type: Report from Study
  Country: US (occurrence: US)
  Receive Date: 20200303
  Receipt Date: 20210709
  Transmission Date: 20211014
  Serious: Yes (Other)
  Sender: FDA-Public Use
  Company Number: NVSC2020US060161

PATIENT
  Age: 45 Year
  Sex: Female

DRUGS (5)
  1. COSENTYX [Suspect]
     Active Substance: SECUKINUMAB
     Dosage: UNK (1ST MAINTENANCE DOSE)
     Route: 065
     Dates: start: 20191231
  2. COSENTYX [Suspect]
     Active Substance: SECUKINUMAB
     Dosage: 300 MG, Q2W (EVERY 14 DAYS)
     Route: 065
     Dates: start: 20200219
  3. COSENTYX [Suspect]
     Active Substance: SECUKINUMAB
     Indication: PSORIATIC ARTHROPATHY
     Dosage: 150 MG/KG, QMO
     Route: 058
     Dates: start: 201912
  4. COSENTYX [Suspect]
     Active Substance: SECUKINUMAB
     Dosage: UNK (WEEK 3/SHOT 4)
     Route: 065
     Dates: start: 20191220
  5. COSENTYX [Suspect]
     Active Substance: SECUKINUMAB
     Dosage: UNK
     Route: 065
     Dates: start: 202001

REACTIONS (9)
  - Musculoskeletal stiffness [Not Recovered/Not Resolved]
  - Inappropriate schedule of product administration [Unknown]
  - Pain in extremity [Not Recovered/Not Resolved]
  - Psoriatic arthropathy [Unknown]
  - Psoriasis [Recovered/Resolved]
  - Drug ineffective [Unknown]
  - Arthralgia [Not Recovered/Not Resolved]
  - Injection site pain [Not Recovered/Not Resolved]
  - Movement disorder [Recovering/Resolving]

NARRATIVE: CASE EVENT DATE: 201912
